FAERS Safety Report 18155211 (Version 1)
Quarter: 2020Q3

REPORT INFORMATION
  Report Type: Spontaneous
  Country: US (occurrence: US)
  Receive Date: 20200817
  Receipt Date: 20200817
  Transmission Date: 20201103
  Serious: No
  Sender: FDA-Public Use
  Company Number: US-ALLERGAN-2012005US

PATIENT
  Sex: Male

DRUGS (1)
  1. TESTOSTERONE UNK [Suspect]
     Active Substance: TESTOSTERONE
     Indication: BLOOD TESTOSTERONE DECREASED
     Dosage: 150?200 MG IM A MONTH FOR ABOUT 2 YEARS
     Route: 030

REACTIONS (1)
  - Blood testosterone abnormal [Unknown]
